FAERS Safety Report 24272579 (Version 1)
Quarter: 2024Q3

REPORT INFORMATION
  Report Type: Spontaneous
  Country: CA (occurrence: CA)
  Receive Date: 20240902
  Receipt Date: 20240902
  Transmission Date: 20241017
  Serious: Yes (Hospitalization, Other)
  Sender: CELLTRION
  Company Number: CA-CELLTRION INC.-2021CA019690

PATIENT

DRUGS (30)
  1. TRUXIMA [Suspect]
     Active Substance: RITUXIMAB-ABBS
     Indication: Rheumatoid arthritis
     Dosage: 1000 MILLIGRAM, DAY 1/ DAY 15/DAY 1 AND 15
     Route: 042
     Dates: start: 20211111
  2. TRUXIMA [Suspect]
     Active Substance: RITUXIMAB-ABBS
     Dosage: 1000 MG, INFUSION #2
     Route: 042
     Dates: start: 20211111
  3. TRUXIMA [Suspect]
     Active Substance: RITUXIMAB-ABBS
     Dosage: 1000 MG, INFUSION #3
     Route: 042
     Dates: start: 20211111
  4. TRUXIMA [Suspect]
     Active Substance: RITUXIMAB-ABBS
     Dosage: 1000 MG, INFUSION #2
     Route: 042
     Dates: start: 20211111
  5. TRUXIMA [Suspect]
     Active Substance: RITUXIMAB-ABBS
     Dosage: EVERY 6 MONTHS
     Dates: start: 20230119
  6. TRUXIMA [Suspect]
     Active Substance: RITUXIMAB-ABBS
     Dosage: 1000 MG (INFUSION #9)
     Route: 042
     Dates: start: 20211111
  7. TRUXIMA [Suspect]
     Active Substance: RITUXIMAB-ABBS
     Dosage: 1000 MG, INFUSION#11
     Route: 042
     Dates: start: 20211111
  8. MYCOPHENOLIC ACID [Concomitant]
     Active Substance: MYCOPHENOLIC ACID
     Indication: Immunosuppressant drug therapy
     Dosage: 2 DF, TWICE DAILY
  9. PREDNISONE [Concomitant]
     Active Substance: PREDNISONE
  10. NIFEDIPINE [Concomitant]
     Active Substance: NIFEDIPINE
  11. TRESIBA [Concomitant]
     Active Substance: INSULIN DEGLUDEC
  12. EMPAGLIFLOZIN\METFORMIN HYDROCHLORIDE [Concomitant]
     Active Substance: EMPAGLIFLOZIN\METFORMIN HYDROCHLORIDE
  13. MIRTAZAPINE [Concomitant]
     Active Substance: MIRTAZAPINE
     Indication: Antidepressant therapy
     Dosage: 1 DF, AT BEDTIME
  14. DULOXETINE [Concomitant]
     Active Substance: DULOXETINE
     Dosage: TWICE DAILY
  15. GABAPENTIN [Concomitant]
     Active Substance: GABAPENTIN
     Indication: Neuropathy peripheral
     Dosage: 1 DF, TWICE DAILY
  16. NAPROXEN [Concomitant]
     Active Substance: NAPROXEN
  17. ATORVASTATIN [Concomitant]
     Active Substance: ATORVASTATIN
     Indication: Neuropathy peripheral
     Dosage: 1 DF, AT BEDTIME
  18. TOLTERODINE [Concomitant]
     Active Substance: TOLTERODINE
  19. ACETAMINOPHEN [Concomitant]
     Active Substance: ACETAMINOPHEN
     Indication: Premedication
     Dosage: 650 MILLIGRAM
     Route: 042
  20. BENADRYL [Concomitant]
     Active Substance: DIPHENHYDRAMINE HYDROCHLORIDE
     Indication: Premedication
     Dosage: 50 MILLIGRAM
     Route: 042
  21. SOLU-MEDROL [Concomitant]
     Active Substance: METHYLPREDNISOLONE SODIUM SUCCINATE
     Indication: Premedication
     Dosage: 100 MILLIGRAM
     Route: 042
  22. OZEMPIC [Concomitant]
     Active Substance: SEMAGLUTIDE
     Indication: Diabetes mellitus
     Dosage: ONCE PER WEEK
  23. TOLTERODINE/SANDOZ [Concomitant]
     Indication: Neuropathy peripheral
     Dosage: ONCE DAILY
  24. NIFEDIPINE [Concomitant]
     Active Substance: NIFEDIPINE
     Indication: Neuropathy peripheral
     Dosage: 1 DF, MORNING
  25. CARBIDOPA\LEVODOPA [Concomitant]
     Active Substance: CARBIDOPA\LEVODOPA
     Indication: Restless legs syndrome
     Dosage: 2 DF, AT NIGHT
  26. BISOPROLOL [Concomitant]
     Active Substance: BISOPROLOL\BISOPROLOL FUMARATE
     Indication: Tremor
     Dosage: ONCE IN THE MORNING
  27. SYNJARDY [Concomitant]
     Active Substance: EMPAGLIFLOZIN\METFORMIN HYDROCHLORIDE
     Indication: Diabetes mellitus
     Dosage: 1 DF, IN THE MORNING
  28. ASPIRIN [Concomitant]
     Active Substance: ASPIRIN
     Dosage: LOW DOSE ONCE PER DAY
  29. PANTOPRAZOLE [Concomitant]
     Active Substance: PANTOPRAZOLE
  30. MAGNESIUM [Concomitant]
     Active Substance: MAGNESIUM
     Dosage: ONCE PER DAY

REACTIONS (10)
  - Arteriosclerosis [Unknown]
  - Stent placement [Unknown]
  - Pneumonia [Unknown]
  - COVID-19 [Unknown]
  - Condition aggravated [Not Recovered/Not Resolved]
  - Asthma [Recovered/Resolved]
  - Fatigue [Recovered/Resolved]
  - Blood pressure decreased [Unknown]
  - Ear infection [Unknown]
  - Off label use [Unknown]

NARRATIVE: CASE EVENT DATE: 20211111
